FAERS Safety Report 25670376 (Version 1)
Quarter: 2025Q3

REPORT INFORMATION
  Report Type: Spontaneous
  Country: JP (occurrence: JP)
  Receive Date: 20250812
  Receipt Date: 20250812
  Transmission Date: 20251020
  Serious: Yes (Hospitalization)
  Sender: ACCORD
  Company Number: JP-Accord-497417

PATIENT
  Age: 80 Year
  Sex: Male
  Weight: 65 kg

DRUGS (14)
  1. OXALIPLATIN [Interacting]
     Active Substance: OXALIPLATIN
     Indication: Gastric cancer stage III
     Dosage: WAS GIVEN INTRAVENOUSLY ON DAY 1
  2. TRASTUZUMAB [Interacting]
     Active Substance: TRASTUZUMAB
     Indication: Gastric cancer stage III
     Dosage: DAY 1 FIRST CYCLE
  3. TS-1 [Suspect]
     Active Substance: GIMERACIL\OTERACIL POTASSIUM\TEGAFUR
     Indication: Gastric cancer stage III
     Dosage: FROM DAYS 1-14, FOLLOWED BY A 1 WEEK RECOVERY PERIOD
     Route: 048
  4. APREPITANT [Concomitant]
     Active Substance: APREPITANT
     Indication: Premedication
     Dosage: ON DAY 1
  5. TRASTUZUMAB [Interacting]
     Active Substance: TRASTUZUMAB
     Indication: HER2 positive gastric cancer
     Dosage: DAY 1; FROM SECOND CYCLE TO 11 CYCLE
  6. APREPITANT [Concomitant]
     Active Substance: APREPITANT
     Indication: Premedication
     Dosage: 80 MG ON DAYS 2 AND 3
  7. OXALIPLATIN [Interacting]
     Active Substance: OXALIPLATIN
     Indication: HER2 positive gastric cancer
     Dosage: WAS GIVEN INTRAVENOUSLY ON DAY 1?CYCLE 2
  8. TRASTUZUMAB [Interacting]
     Active Substance: TRASTUZUMAB
     Indication: Gastric cancer stage III
     Dosage: DAY 1; FROM SECOND CYCLE TO 11 CYCLE
  9. OXALIPLATIN [Interacting]
     Active Substance: OXALIPLATIN
     Indication: Metastases to lymph nodes
     Dosage: WAS GIVEN INTRAVENOUSLY ON DAY 1
  10. TRASTUZUMAB [Interacting]
     Active Substance: TRASTUZUMAB
     Indication: HER2 positive gastric cancer
     Dosage: DAY 1 FIRST CYCLE
  11. TRASTUZUMAB [Interacting]
     Active Substance: TRASTUZUMAB
     Indication: Metastases to lymph nodes
     Dosage: DAY 1 FIRST CYCLE
  12. TRASTUZUMAB [Interacting]
     Active Substance: TRASTUZUMAB
     Indication: Metastases to lymph nodes
     Dosage: DAY 1; FROM SECOND CYCLE TO 11 CYCLE
  13. TS-1 [Suspect]
     Active Substance: GIMERACIL\OTERACIL POTASSIUM\TEGAFUR
     Indication: HER2 positive gastric cancer
     Dosage: FROM DAYS 1-14, FOLLOWED BY A 1 WEEK RECOVERY PERIOD
     Route: 048
  14. TS-1 [Suspect]
     Active Substance: GIMERACIL\OTERACIL POTASSIUM\TEGAFUR
     Indication: Metastases to lymph nodes
     Dosage: FROM DAYS 1-14, FOLLOWED BY A 1 WEEK RECOVERY PERIOD
     Route: 048

REACTIONS (9)
  - Therapy partial responder [Unknown]
  - Cardiac failure [Recovered/Resolved]
  - Ventricular dysfunction [Recovered/Resolved]
  - Electrocardiogram QRS complex prolonged [Recovered/Resolved]
  - Bundle branch block right [Recovered/Resolved]
  - Ventricular extrasystoles [Recovered/Resolved]
  - Bradycardia [Recovered/Resolved]
  - Drug interaction [Unknown]
  - Syncope [Recovered/Resolved]
